FAERS Safety Report 20631950 (Version 1)
Quarter: 2022Q1

REPORT INFORMATION
  Report Type: Spontaneous
  Country: US (occurrence: US)
  Receive Date: 20220324
  Receipt Date: 20220324
  Transmission Date: 20220424
  Serious: No
  Sender: FDA-Public Use
  Company Number: US-Calliditas-2022CAL00004

PATIENT
  Age: 76 Year
  Sex: Female
  Weight: 69.9 kg

DRUGS (1)
  1. TARPEYO [Suspect]
     Active Substance: BUDESONIDE
     Indication: Haematuria
     Dosage: 16 MG ONCE DAILY
     Route: 050
     Dates: start: 20220201

REACTIONS (2)
  - Diarrhoea [Unknown]
  - Product residue present [Unknown]

NARRATIVE: CASE EVENT DATE: 20220215
